FAERS Safety Report 20574317 (Version 5)
Quarter: 2023Q1

REPORT INFORMATION
  Report Type: Spontaneous
  Country: US (occurrence: US)
  Receive Date: 20220309
  Receipt Date: 20230125
  Transmission Date: 20230417
  Serious: Yes (Other)
  Sender: FDA-Public Use
  Company Number: US-BRISTOL-MYERS SQUIBB COMPANY-BMS-2022-030715

PATIENT
  Age: 70 Year
  Sex: Male
  Weight: 97.52 kg

DRUGS (9)
  1. SPRYCEL [Suspect]
     Active Substance: DASATINIB
     Indication: Chronic myeloid leukaemia
     Dosage: 100 MILLIGRAM, QD
     Route: 048
     Dates: start: 20210624, end: 20220224
  2. SPRYCEL [Suspect]
     Active Substance: DASATINIB
     Route: 048
     Dates: start: 20220515
  3. HYDROCODONE [Suspect]
     Active Substance: HYDROCODONE
     Indication: Migraine
     Dosage: EVERY 4-6 HOURS
  4. GLEEVEC [Concomitant]
     Active Substance: IMATINIB MESYLATE
     Indication: Product used for unknown indication
     Dates: start: 2016, end: 2021
  5. DIAZEPAM [Concomitant]
     Active Substance: DIAZEPAM
     Indication: Anxiety
     Dosage: TAKES NO MORE THAN A TOTAL OF 15 MG DAILY, SOMEDAYS HE TAKES NONE
  6. PEPCID [Concomitant]
     Active Substance: FAMOTIDINE
     Indication: Gastrooesophageal reflux disease
     Dosage: 40 MG A FEW DAYS PER WEEK, SPREAD OUT FAR FROM HIS DOSE OF SPYRCEL, ONCE OR TWICE A DAY?EVERY OTHER
  7. VALIUM [Concomitant]
     Active Substance: DIAZEPAM
     Indication: Product used for unknown indication
  8. BETAMETHASONE [Concomitant]
     Active Substance: BETAMETHASONE
     Indication: Skin disorder
     Route: 061
  9. TAZORAC [Concomitant]
     Active Substance: TAZAROTENE
     Indication: Skin disorder
     Route: 061

REACTIONS (15)
  - Neuropathy peripheral [Unknown]
  - Erectile dysfunction [Unknown]
  - Pleural effusion [Recovered/Resolved]
  - Migraine [Unknown]
  - Dyspepsia [Unknown]
  - Anxiety [Unknown]
  - Depression [Unknown]
  - Sleep deficit [Unknown]
  - Skin exfoliation [Unknown]
  - Nausea [Unknown]
  - Diarrhoea [Unknown]
  - Constipation [Unknown]
  - Post procedural complication [Unknown]
  - Skin fissures [Unknown]
  - Blood glucose increased [Unknown]

NARRATIVE: CASE EVENT DATE: 20220105
